FAERS Safety Report 9277875 (Version 1)
Quarter: 2013Q2

REPORT INFORMATION
  Report Type: Report from Study
  Country: US (occurrence: US)
  Receive Date: 20130508
  Receipt Date: 20130508
  Transmission Date: 20140414
  Serious: No
  Sender: FDA-Public Use
  Company Number: PHEH2012US007886

PATIENT
  Sex: Female

DRUGS (17)
  1. GLEEVEC [Suspect]
     Dosage: UNK UKN, UNK
  2. TASIGNA [Suspect]
     Dosage: UNK UKN, UNK
  3. CYCLOSPORINE [Concomitant]
     Dosage: UNK UKN, UNK
  4. CELLCEPT [Concomitant]
     Dosage: UNK UKN, UNK
  5. PROTONIX [Concomitant]
     Dosage: UNK UKN, UNK
  6. ACYCLOVIR [Concomitant]
     Dosage: UNK UKN, UNK
  7. BACTRIM [Concomitant]
     Dosage: UNK UKN, UNK
  8. PREMARIN [Concomitant]
     Dosage: UNK UKN, UNK
  9. SYNTHROID [Concomitant]
     Dosage: UNK UKN, UNK
  10. ATIVAN [Concomitant]
     Dosage: UNK UKN, UNK
  11. TYLENOL [Concomitant]
     Dosage: UNK UKN, UNK
  12. VICODIN [Concomitant]
     Dosage: UNK UKN, UNK
  13. VITAMIN D [Concomitant]
     Dosage: UNK UKN, UNK
  14. VITAMIN E [Concomitant]
     Dosage: UNK UKN, UNK
  15. CALCIUM [Concomitant]
     Dosage: UNK UKN, UNK
  16. GAS [Concomitant]
     Dosage: UNK UKN, UNK
  17. PREDNISONE [Concomitant]
     Dosage: UNK UKN, UNK

REACTIONS (2)
  - Nausea [Unknown]
  - Diarrhoea [Unknown]
